FAERS Safety Report 5829729-5 (Version None)
Quarter: 2008Q3

REPORT INFORMATION
  Report Type: 
  Country: None (occurrence: None)
  Receive Date: 20080801
  Receipt Date: 20080728
  Transmission Date: 20090109
  Serious: Yes (Other)
  Sender: FDA-Public Use
  Company Number: TR-BRISTOL-MYERS SQUIBB COMPANY-14280366

PATIENT
  Age: 16 Year
  Sex: Male

DRUGS (5)
  1. AMIKACIN SULFATE [Suspect]
     Indication: ANTIBIOTIC THERAPY
  2. CEFEPIME [Suspect]
     Indication: ANTIBIOTIC THERAPY
  3. TPN [Suspect]
     Route: 051
  4. METHOTREXATE [Suspect]
     Indication: ACUTE LYMPHOCYTIC LEUKAEMIA
  5. CYTARABINE [Suspect]
     Indication: ACUTE LYMPHOCYTIC LEUKAEMIA

REACTIONS (3)
  - BRONCHOPULMONARY ASPERGILLOSIS [None]
  - HEPATOSPLENIC CANDIDIASIS [None]
  - NEUTROPENIC COLITIS [None]
